FAERS Safety Report 18507086 (Version 2)
Quarter: 2020Q4

REPORT INFORMATION
  Report Type: Spontaneous
  Country: CN (occurrence: CN)
  Receive Date: 20201116
  Receipt Date: 20201204
  Transmission Date: 20210114
  Serious: Yes (Other)
  Sender: FDA-Public Use
  Company Number: CN-ASTELLAS-2020US039941

PATIENT
  Age: 57 Year
  Sex: Male

DRUGS (3)
  1. ROXADUSTAT. [Concomitant]
     Active Substance: ROXADUSTAT
     Indication: ANAEMIA
     Dosage: UNK, UNKNOWN FREQ.
     Route: 048
     Dates: start: 20201022
  2. PROGRAF [Suspect]
     Active Substance: TACROLIMUS
     Indication: PROPHYLAXIS AGAINST TRANSPLANT REJECTION
     Dosage: UNK UNK, UNKNOWN FREQ.
     Route: 048
  3. PROGRAF [Suspect]
     Active Substance: TACROLIMUS
     Dosage: 0.5 MG, UNKNOWN FREQ.
     Route: 048
     Dates: end: 20201109

REACTIONS (2)
  - Pancreatic leak [Recovering/Resolving]
  - Immunosuppressant drug level increased [Unknown]

NARRATIVE: CASE EVENT DATE: 20201030
